FAERS Safety Report 8058064-2 (Version None)
Quarter: 2012Q1

REPORT INFORMATION
  Report Type: 
  Country: None (occurrence: None)
  Receive Date: 20120118
  Receipt Date: 20120118
  Transmission Date: 20120608
  Serious: Yes (Hospitalization)
  Sender: FDA-Public Use
  Company Number: None

PATIENT
  Age: 73 Year
  Sex: Female

DRUGS (2)
  1. AZACITIDINE [Suspect]
     Dosage: 75 MG/M2 D1-5 IV
     Route: 042
     Dates: start: 20110620, end: 20110805
  2. LENALIDOMIDE [Suspect]
     Indication: ACUTE MYELOID LEUKAEMIA
     Dosage: 50 MG D1-28 PO
     Route: 048
     Dates: start: 20110620, end: 20110827

REACTIONS (1)
  - BARTHOLIN'S CYST [None]
